FAERS Safety Report 17550157 (Version 3)
Quarter: 2020Q2

REPORT INFORMATION
  Report Type: Spontaneous
  Country: CO (occurrence: CO)
  Receive Date: 20200317
  Receipt Date: 20200422
  Transmission Date: 20200713
  Serious: Yes (Other)
  Sender: FDA-Public Use
  Company Number: CO-PFIZER INC-2019338973

PATIENT
  Age: 66 Year
  Sex: Female

DRUGS (6)
  1. GENOTROPIN [Suspect]
     Active Substance: SOMATROPIN
     Dosage: 0.8 MG, UNK
     Route: 058
     Dates: end: 202001
  2. DENOSUMAB [Concomitant]
     Active Substance: DENOSUMAB
     Indication: OSTEOPOROSIS
     Dosage: UNK
  3. GENOTROPIN [Suspect]
     Active Substance: SOMATROPIN
     Indication: THYROID DISORDER
     Dosage: 0.7 MG, UNK
     Route: 058
     Dates: start: 201904
  4. GENOTROPIN [Suspect]
     Active Substance: SOMATROPIN
     Indication: GROWTH HORMONE DEFICIENCY
     Dosage: 0.4 MG, UNK
  5. GENOTROPIN [Suspect]
     Active Substance: SOMATROPIN
     Indication: WEIGHT DECREASED
     Dosage: 0.7 MG, UNK
  6. GENOTROPIN [Suspect]
     Active Substance: SOMATROPIN
     Dosage: 0.6 MG, UNK
     Route: 058

REACTIONS (9)
  - Intentional product misuse [Unknown]
  - Gait inability [Unknown]
  - Hypoaesthesia [Unknown]
  - Product dose omission [Unknown]
  - Spinal disorder [Unknown]
  - Drug dependence [Unknown]
  - Arthralgia [Unknown]
  - Malaise [Unknown]
  - Condition aggravated [Unknown]

NARRATIVE: CASE EVENT DATE: 202002
